FAERS Safety Report 6077884-7 (Version None)
Quarter: 2009Q1

REPORT INFORMATION
  Report Type: 
  Country: None (occurrence: None)
  Receive Date: 20090213
  Receipt Date: 20090202
  Transmission Date: 20090719
  Serious: Yes (Other)
  Sender: FDA-Public Use
  Company Number: US-PFIZER INC-2009167085

PATIENT
  Sex: Male
  Weight: 208.62 kg

DRUGS (2)
  1. GABAPENTIN [Suspect]
     Indication: CONVULSION
     Dosage: 400 MG, 3X/DAY
     Route: 048
     Dates: start: 20030101
  2. TRILEPTAL [Concomitant]

REACTIONS (2)
  - CONVULSION [None]
  - DRUG DOSE OMISSION [None]
